FAERS Safety Report 21412421 (Version 1)
Quarter: 2022Q4

REPORT INFORMATION
  Report Type: Spontaneous
  Country: US (occurrence: US)
  Receive Date: 20221005
  Receipt Date: 20221005
  Transmission Date: 20230113
  Serious: No
  Sender: FDA-Public Use
  Company Number: US-INTRA-CELLULAR THERAPIES, INC.-2022ICT01061

PATIENT
  Age: 59 Year
  Sex: Female
  Weight: 90.703 kg

DRUGS (7)
  1. CAPLYTA [Suspect]
     Active Substance: LUMATEPERONE
     Indication: Bipolar disorder
     Dosage: 42 MG, 1X/DAY AT BEDTIME
     Route: 048
     Dates: start: 20220621, end: 20220711
  2. ARMODAFINIL [Concomitant]
     Active Substance: ARMODAFINIL
  3. BELSOMRA [Concomitant]
     Active Substance: SUVOREXANT
  4. BENZTROPINE [Concomitant]
     Active Substance: BENZTROPINE
  5. FENTANYL [Concomitant]
     Active Substance: FENTANYL
  6. NEXIUM [Concomitant]
     Active Substance: ESOMEPRAZOLE MAGNESIUM
  7. XANAX [Concomitant]
     Active Substance: ALPRAZOLAM

REACTIONS (8)
  - Feeling drunk [Unknown]
  - Memory impairment [Unknown]
  - Depression [Unknown]
  - Performance status decreased [Unknown]
  - Sedation [Recovered/Resolved]
  - Movement disorder [Recovered/Resolved]
  - Gait disturbance [Unknown]
  - Unevaluable event [Unknown]

NARRATIVE: CASE EVENT DATE: 20220622
